FAERS Safety Report 10332391 (Version 1)
Quarter: 2014Q3

REPORT INFORMATION
  Report Type: Report from Study
  Country: US (occurrence: US)
  Receive Date: 20140722
  Receipt Date: 20140722
  Transmission Date: 20150326
  Serious: Yes (Hospitalization)
  Sender: FDA-Public Use
  Company Number: US-BRISTOL-MYERS SQUIBB COMPANY-21221551

PATIENT
  Age: 34 Year
  Sex: Male
  Weight: 117.91 kg

DRUGS (13)
  1. INSULIN 70/30 [Concomitant]
     Dates: start: 1998
  2. INSULIN 70/30 [Concomitant]
     Dosage: 1 DF = 1-10 UNITS
     Dates: start: 2008
  3. NEXIUM [Concomitant]
     Active Substance: ESOMEPRAZOLE MAGNESIUM
     Dates: start: 201210
  4. METOPROLOL SUCCINATE XL [Concomitant]
     Dates: start: 201211
  5. LOSARTAN POTASSIUM + HCTZ [Concomitant]
     Active Substance: HYDROCHLOROTHIAZIDE\LOSARTAN
     Dosage: 1 DF = 100-25 MG
     Dates: start: 20140516
  6. METFORMIN [Concomitant]
     Active Substance: METFORMIN HYDROCHLORIDE
     Dates: start: 1998
  7. CRESTOR [Concomitant]
     Active Substance: ROSUVASTATIN CALCIUM
     Dates: start: 2007
  8. VITAMIN D [Concomitant]
     Active Substance: CHOLECALCIFEROL
     Dates: start: 20130910
  9. ASPIRIN. [Concomitant]
     Active Substance: ASPIRIN
     Dates: start: 20130917
  10. METRELEPTIN [Suspect]
     Active Substance: INVESTIGATIONAL PRODUCT
     Indication: NON-ALCOHOLIC STEATOHEPATITIS
     Dosage: 3.75 MG
     Route: 058
  11. GABAPENTIN. [Concomitant]
     Active Substance: GABAPENTIN
     Dates: start: 201405
  12. METANX [Concomitant]
     Active Substance: LEVOMEFOLATE CALCIUM\METHYLCOBALAMIN\PYRIDOXAL PHOSPHATE ANHYDROUS
     Dates: start: 201405
  13. LOVAZA [Concomitant]
     Active Substance: OMEGA-3-ACID ETHYL ESTERS
     Dates: start: 201405

REACTIONS (2)
  - Abdominal pain upper [Unknown]
  - Chest discomfort [Unknown]

NARRATIVE: CASE EVENT DATE: 20140711
